FAERS Safety Report 6083635-2 (Version None)
Quarter: 2009Q1

REPORT INFORMATION
  Report Type: 
  Country: None (occurrence: None)
  Receive Date: 20090219
  Receipt Date: 20090209
  Transmission Date: 20090719
  Serious: Yes (Other)
  Sender: FDA-Public Use
  Company Number: FR-AMGEN-UK305562

PATIENT
  Age: 67 Year
  Sex: Male

DRUGS (2)
  1. ROMIPLOSTIM [Suspect]
     Indication: IDIOPATHIC THROMBOCYTOPENIC PURPURA
     Route: 058
     Dates: start: 20080619
  2. LENOGRASTIM [Concomitant]
     Route: 065

REACTIONS (3)
  - ASTHENIA [None]
  - HEADACHE [None]
  - MYALGIA [None]
